FAERS Safety Report 19819951 (Version 3)
Quarter: 2021Q4

REPORT INFORMATION
  Report Type: Other
  Country: LB (occurrence: LB)
  Receive Date: 20210913
  Receipt Date: 20211002
  Transmission Date: 20220303
  Serious: Yes (Death, Hospitalization)
  Sender: FDA-Public Use
  Company Number: LB-ROCHE-2908129

PATIENT
  Sex: Male

DRUGS (1)
  1. TECENTRIQ [Suspect]
     Active Substance: ATEZOLIZUMAB
     Indication: Lung neoplasm malignant
     Route: 041
     Dates: start: 20201126, end: 20210810

REACTIONS (3)
  - Death [Fatal]
  - Hypoxia [Recovering/Resolving]
  - Pneumonia [Recovered/Resolved]

NARRATIVE: CASE EVENT DATE: 20210907
